FAERS Safety Report 4932526-6 (Version None)
Quarter: 2006Q1

REPORT INFORMATION
  Report Type: 
  Country: None (occurrence: None)
  Receive Date: 20060303
  Receipt Date: 20060221
  Transmission Date: 20060701
  Serious: Yes (Hospitalization, Disabling)
  Sender: FDA-Public Use
  Company Number: US-MERCK-0602USA05240

PATIENT
  Age: 55 Year
  Sex: Female
  Weight: 44 kg

DRUGS (5)
  1. VIOXX [Suspect]
     Indication: BURSITIS
     Route: 048
     Dates: start: 20001107, end: 20010226
  2. VIOXX [Suspect]
     Route: 048
     Dates: start: 20010201
  3. ASPIRIN [Concomitant]
     Route: 065
     Dates: start: 20010301
  4. FOSAMAX [Suspect]
     Route: 048
  5. ST JOHNS WORT [Concomitant]
     Indication: PROPHYLAXIS
     Route: 065
     Dates: start: 20010701

REACTIONS (6)
  - ABDOMINAL PAIN UPPER [None]
  - BLADDER DISORDER [None]
  - LIGAMENT SPRAIN [None]
  - MYOCARDIAL INFARCTION [None]
  - NEPHROLITHIASIS [None]
  - ULCER [None]
